FAERS Safety Report 16680598 (Version 1)
Quarter: 2019Q3

REPORT INFORMATION
  Report Type: Spontaneous
  Country: US (occurrence: US)
  Receive Date: 20190808
  Receipt Date: 20190808
  Transmission Date: 20191004
  Serious: No
  Sender: FDA-Public Use
  Company Number: US-LUPIN PHARMACEUTICALS INC.-2019-02572

PATIENT

DRUGS (1)
  1. LEVETIRACETAM EXTENDED RELEASE TABLET USP, 750 MG [Suspect]
     Active Substance: LEVETIRACETAM
     Indication: SEIZURE
     Dosage: 750 MILLIGRAM, BID
     Route: 065

REACTIONS (3)
  - Epigastric discomfort [Recovering/Resolving]
  - Blood pressure increased [Unknown]
  - Gastrooesophageal reflux disease [Recovering/Resolving]
